FAERS Safety Report 10191948 (Version 2)
Quarter: 2014Q2

REPORT INFORMATION
  Report Type: Spontaneous
  Country: US (occurrence: US)
  Receive Date: 20140523
  Receipt Date: 20140604
  Transmission Date: 20141212
  Serious: Yes (Other)
  Sender: FDA-Public Use
  Company Number: US-BAYER-2014-073485

PATIENT
  Age: 38 Year
  Sex: Female

DRUGS (1)
  1. MIRENA [Suspect]
     Indication: CONTRACEPTION
     Dosage: 20 MCG/24HR, CONT
     Route: 015
     Dates: start: 20110425

REACTIONS (8)
  - Pregnancy with contraceptive device [None]
  - Menstruation delayed [None]
  - Drug ineffective [None]
  - Device difficult to use [None]
  - Embedded device [None]
  - Complication of device removal [None]
  - Device breakage [None]
  - Abortion spontaneous [None]
